FAERS Safety Report 5978855-9 (Version None)
Quarter: 2008Q4

REPORT INFORMATION
  Report Type: 
  Country: None (occurrence: None)
  Receive Date: 20081204
  Receipt Date: 20081202
  Transmission Date: 20090506
  Serious: Yes (Other)
  Sender: FDA-Public Use
  Company Number: US-ASTRAZENECA-2007UW25069

PATIENT
  Age: 21957 Day
  Sex: Male
  Weight: 106.6 kg

DRUGS (11)
  1. CRESTOR [Suspect]
     Indication: LOW DENSITY LIPOPROTEIN INCREASED
     Route: 048
     Dates: start: 20050906
  2. ANTARA (MICRONIZED) [Concomitant]
     Dosage: 130 MG
  3. AMITRIPTYLINE HCL [Concomitant]
  4. GLYBURIDE [Concomitant]
  5. TOPROL-XL [Concomitant]
     Route: 048
  6. ASPIRIN [Concomitant]
     Route: 048
  7. LYRICA [Concomitant]
  8. ACTOS [Concomitant]
     Route: 048
     Dates: start: 20060221
  9. LANTUS [Concomitant]
     Dosage: 20 U
  10. HYDROCHLOROTHIAZIDE [Concomitant]
     Indication: HYPERTENSION
     Route: 048
  11. GLUCOVANCE [Concomitant]
     Indication: DIABETES MELLITUS
     Dosage: 5/500
     Route: 048

REACTIONS (2)
  - ACUTE MYOCARDIAL INFARCTION [None]
  - POSTOPERATIVE FEVER [None]
